FAERS Safety Report 6710800-0 (Version None)
Quarter: 2010Q2

REPORT INFORMATION
  Report Type: 
  Country: None (occurrence: None)
  Receive Date: 20100505
  Receipt Date: 20100426
  Transmission Date: 20101027
  Serious: Yes (Hospitalization)
  Sender: FDA-Public Use
  Company Number: US-BIOGENIDEC-2010BI013947

PATIENT
  Age: 57 Year
  Sex: Female

DRUGS (2)
  1. TYSABRI [Suspect]
     Indication: MULTIPLE SCLEROSIS
     Route: 042
     Dates: start: 20090413, end: 20091105
  2. TYSABRI [Suspect]
     Route: 042
     Dates: start: 20100210

REACTIONS (2)
  - LOSS OF CONSCIOUSNESS [None]
  - SEPSIS [None]
